FAERS Safety Report 4499715-9 (Version None)
Quarter: 2004Q4

REPORT INFORMATION
  Report Type: 
  Country: None (occurrence: None)
  Receive Date: 20041108
  Receipt Date: 20041103
  Transmission Date: 20050328
  Serious: Yes (Hospitalization)
  Sender: FDA-Public Use
  Company Number: 2004-05-2054

PATIENT
  Sex: Male

DRUGS (5)
  1. REBETOL [Suspect]
     Indication: HEPATITIS C
     Dosage: 1200 MG QD ORAL
     Route: 048
     Dates: start: 20040401, end: 20040724
  2. PEGASYS [Suspect]
     Indication: HEPATITIS C
     Dosage: 180 MCG QW
     Dates: start: 20040401, end: 20040724
  3. MIANSERIN [Suspect]
  4. SEROXAT [Concomitant]
  5. THERALEN [Concomitant]

REACTIONS (10)
  - AGGRESSION [None]
  - ANXIETY [None]
  - CONDITION AGGRAVATED [None]
  - CONFUSIONAL STATE [None]
  - DEPRESSION [None]
  - DRUG ABUSER [None]
  - GRAND MAL CONVULSION [None]
  - IRRITABILITY [None]
  - PSYCHOTIC DISORDER [None]
  - SCREAMING [None]
